FAERS Safety Report 9897107 (Version 3)
Quarter: 2014Q4

REPORT INFORMATION
  Report Type: Spontaneous
  Country: US (occurrence: US)
  Receive Date: 20140214
  Receipt Date: 20141118
  Transmission Date: 20150529
  Serious: Yes (Other)
  Sender: FDA-Public Use
  Company Number: US-AMGEN-USASP2014009800

PATIENT
  Age: 49 Year
  Sex: Male
  Weight: 92.51 kg

DRUGS (12)
  1. ENBREL [Suspect]
     Active Substance: ETANERCEPT
     Indication: RHEUMATOID ARTHRITIS
     Dosage: 50 MG, QWK
     Route: 065
     Dates: start: 20130101
  2. BENAZEPRIL HCL [Concomitant]
     Active Substance: BENAZEPRIL HYDROCHLORIDE
     Dosage: 5 MG, DAILY
     Route: 048
  3. ADVAIR HFA [Concomitant]
     Active Substance: FLUTICASONE PROPIONATE\SALMETEROL XINAFOATE
     Dosage: 250/50 AEROSOL POWDER PUFF DAILY
  4. METHOTREXATE [Concomitant]
     Active Substance: METHOTREXATE
     Dosage: 2.5 MG, 5 TABLETS ONCE A WEEK
  5. PREDNISONE. [Concomitant]
     Active Substance: PREDNISONE
     Dosage: 5 MG, DAILY LONG STANDING
     Route: 048
  6. PREDNISONE. [Concomitant]
     Active Substance: PREDNISONE
     Dosage: 5 MG TABLETS 2 A DAY FOR 5 DAYS
  7. METHOTREXATE [Concomitant]
     Active Substance: METHOTREXATE
     Dosage: 2.5MG, 6 TABLETS ONCE WEEKLY
     Route: 048
  8. METHOTREXATE [Concomitant]
     Active Substance: METHOTREXATE
     Dosage: 2.5 MG, 3 TABLETS EACH WEEK WITH FOOD
     Route: 048
  9. PREDNISONE. [Concomitant]
     Active Substance: PREDNISONE
     Dosage: 5 MG TABLETS AS DIRECTED 3 A DAY FOR 5 DAYS
  10. DEPO-MEDROL [Concomitant]
     Active Substance: METHYLPREDNISOLONE ACETATE
     Dosage: 40 MG, UNK
     Dates: start: 20130416
  11. PREDNISONE. [Concomitant]
     Active Substance: PREDNISONE
  12. CELEBREX [Concomitant]
     Active Substance: CELECOXIB
     Dosage: 200 MG, 1 CAPSULE WITH FOOD, ONCE A DAY, 30 DAYS
     Route: 048

REACTIONS (46)
  - Laceration [Unknown]
  - Insomnia [Unknown]
  - Abdominal pain [Unknown]
  - Rheumatoid arthritis [Unknown]
  - Foot deformity [Unknown]
  - Fatigue [Unknown]
  - Contusion [Unknown]
  - Rash [Recovered/Resolved]
  - Musculoskeletal stiffness [Unknown]
  - Injection site reaction [Unknown]
  - Infection [Unknown]
  - Meniscus injury [Not Recovered/Not Resolved]
  - Wound secretion [Unknown]
  - Drug ineffective [Unknown]
  - Paraesthesia [Unknown]
  - Asthenia [Unknown]
  - Diarrhoea [Unknown]
  - Back pain [Unknown]
  - Feeling hot [Unknown]
  - Nodule [Not Recovered/Not Resolved]
  - Immunology test abnormal [Unknown]
  - Mobility decreased [Unknown]
  - Exercise tolerance decreased [Unknown]
  - Joint stiffness [Unknown]
  - Hypoaesthesia [Unknown]
  - Joint swelling [Unknown]
  - Synovitis [Unknown]
  - Injection site induration [Unknown]
  - Local swelling [Unknown]
  - Cough [Recovered/Resolved]
  - Rash generalised [Recovered/Resolved]
  - Pain [Unknown]
  - Pain in extremity [Unknown]
  - Condition aggravated [Unknown]
  - Gait disturbance [Not Recovered/Not Resolved]
  - Depressed mood [Unknown]
  - Injection site erythema [Recovered/Resolved]
  - Injection site swelling [Recovered/Resolved]
  - Arthralgia [Not Recovered/Not Resolved]
  - Activities of daily living impaired [Unknown]
  - Erythema [Unknown]
  - Skin fissures [Not Recovered/Not Resolved]
  - Headache [Unknown]
  - Solar dermatitis [Recovered/Resolved]
  - Raynaud^s phenomenon [Unknown]
  - Joint range of motion decreased [Unknown]

NARRATIVE: CASE EVENT DATE: 201306
